FAERS Safety Report 5981831-3 (Version None)
Quarter: 2008Q4

REPORT INFORMATION
  Report Type: 
  Country: None (occurrence: None)
  Receive Date: 20081202
  Receipt Date: 20081121
  Transmission Date: 20090506
  Serious: Yes (Hospitalization)
  Sender: FDA-Public Use
  Company Number: 2008AP003206

PATIENT
  Sex: Female

DRUGS (1)
  1. EPLERENONE [Suspect]
     Dosage: 25 MG; PO
     Route: 048

REACTIONS (3)
  - DYSPNOEA [None]
  - RENAL FAILURE [None]
  - WEIGHT INCREASED [None]
